FAERS Safety Report 8078752-1 (Version None)
Quarter: 2012Q1

REPORT INFORMATION
  Report Type: 
  Country: None (occurrence: None)
  Receive Date: 20120127
  Receipt Date: 20110110
  Transmission Date: 20120608
  Serious: No
  Sender: FDA-Public Use
  Company Number: US-ABBOTT-11P-163-0696446-00

PATIENT
  Age: 53 Year
  Sex: Female

DRUGS (12)
  1. ASPIRIN [Concomitant]
     Indication: PROPHYLAXIS
     Dosage: LOW DOSE
  2. CELEBREX [Concomitant]
     Indication: RHEUMATOID ARTHRITIS
  3. METHOTREXATE [Concomitant]
     Indication: RHEUMATOID ARTHRITIS
  4. NEURONTIN [Concomitant]
     Indication: RHEUMATOID ARTHRITIS
  5. VITAMIN D [Concomitant]
     Indication: VITAMIN SUPPLEMENTATION
  6. COREG [Concomitant]
     Indication: BLOOD PRESSURE
  7. HUMIRA [Suspect]
     Indication: RHEUMATOID ARTHRITIS
     Dates: start: 20091101
  8. FOLIC ACID [Concomitant]
     Indication: VITAMIN SUPPLEMENTATION
  9. MULTI-VITAMIN [Concomitant]
     Indication: PRODUCT USED FOR UNKNOWN INDICATION
  10. VOLTAREN [Concomitant]
     Indication: PAIN
     Dosage: GEL
  11. ZYRTEC [Concomitant]
     Indication: HYPERSENSITIVITY
  12. LISINOPRIL [Concomitant]
     Indication: BLOOD PRESSURE

REACTIONS (5)
  - PYREXIA [None]
  - FATIGUE [None]
  - PAIN [None]
  - NASAL CONGESTION [None]
  - DYSPHONIA [None]
